FAERS Safety Report 8386955-1 (Version None)
Quarter: 2012Q2

REPORT INFORMATION
  Report Type: 
  Country: None (occurrence: None)
  Receive Date: 20120523
  Receipt Date: 20120514
  Transmission Date: 20120825
  Serious: Yes (Hospitalization)
  Sender: FDA-Public Use
  Company Number: 134073

PATIENT
  Age: 61 Year
  Sex: Male

DRUGS (1)
  1. CISPLATIN [Suspect]
     Indication: LUNG NEOPLASM MALIGNANT
     Dosage: 83MG/M2 ON DAY 1

REACTIONS (1)
  - SUPERIOR MESENTERIC ARTERY SYNDROME [None]
